FAERS Safety Report 21677631 (Version 2)
Quarter: 2022Q4

REPORT INFORMATION
  Report Type: Other
  Country: MX (occurrence: MX)
  Receive Date: 20221203
  Receipt Date: 20221214
  Transmission Date: 20230113
  Serious: No
  Sender: FDA-Public Use
  Company Number: MX-002147023-NVSC2022MX280771

PATIENT
  Sex: Female
  Weight: 51 kg

DRUGS (7)
  1. GILENYA [Suspect]
     Active Substance: FINGOLIMOD HYDROCHLORIDE
     Indication: Multiple sclerosis
     Dosage: 1 DOSAGE FORM, QD (0.5 MG) STARTED: 2 YEARS AGO, DID NOT KNOW EXACT DATE
     Route: 048
  2. GILENYA [Suspect]
     Active Substance: FINGOLIMOD HYDROCHLORIDE
     Dosage: 0.5 MG, QD
     Route: 048
     Dates: start: 20220923
  3. PAROXETINE [Concomitant]
     Active Substance: PAROXETINE
     Indication: Multiple sclerosis
     Dosage: 1 DOSAGE FORM, Q24H (STARTED: SEVERAL YEARS AGO, DID NOT KNOW THE EXACT DATE)
     Route: 048
  4. PREGABALIN [Concomitant]
     Active Substance: PREGABALIN
     Indication: Multiple sclerosis
     Dosage: 1 DOSAGE FORM, Q12H (STARTED: SEVERAL YEARS AGO, DID NOT KNOW THE EXACT DATE)
     Route: 048
  5. VITAMIN D [Concomitant]
     Active Substance: VITAMIN D NOS
     Indication: Multiple sclerosis
     Dosage: 1 DOSAGE FORM, Q24H (STARTED: SEVERAL YEARS AGO, DID NOT KNOW THE EXACT DATE)
     Route: 048
  6. QUETIAPINE [Concomitant]
     Active Substance: QUETIAPINE
     Indication: Multiple sclerosis
     Dosage: 1 DOSAGE FORM, Q24H
     Route: 048
  7. ACETAMINOPHEN\TRAMADOL [Concomitant]
     Active Substance: ACETAMINOPHEN\TRAMADOL
     Indication: Hernia pain
     Dosage: 1 DOSAGE FORM, Q12H (3 YEARS AGO, DID NOT KNOW THE EXACT DATE)
     Route: 048
     Dates: end: 202201

REACTIONS (1)
  - No adverse event [Unknown]
